FAERS Safety Report 13984189 (Version 1)
Quarter: 2017Q3

REPORT INFORMATION
  Report Type: Report from Study
  Country: US (occurrence: US)
  Receive Date: 20170918
  Receipt Date: 20170918
  Transmission Date: 20171128
  Serious: Yes (Other)
  Sender: FDA-Public Use
  Company Number: US-BAYER-2017-172214

PATIENT
  Age: 61 Year
  Sex: Female

DRUGS (1)
  1. GADOVIST [Suspect]
     Active Substance: GADOBUTROL
     Dosage: 10 ML, ONCE
     Dates: start: 201512, end: 201512

REACTIONS (21)
  - Muscular weakness [None]
  - Hypoaesthesia [None]
  - Myalgia [None]
  - Cognitive disorder [None]
  - Paraesthesia [None]
  - Impaired healing [None]
  - Arthralgia [None]
  - Goitre [None]
  - Thyroid mass [None]
  - Skin burning sensation [None]
  - Chest pain [None]
  - Dysphagia [None]
  - Alopecia [None]
  - Neuralgia [None]
  - Musculoskeletal chest pain [None]
  - Gadolinium deposition disease [None]
  - Chest discomfort [None]
  - Skin discolouration [None]
  - Headache [None]
  - Eye pain [None]
  - Fatigue [None]
